FAERS Safety Report 11913892 (Version 1)
Quarter: 2016Q1

REPORT INFORMATION
  Report Type: Spontaneous
  Country: US (occurrence: US)
  Receive Date: 20160113
  Receipt Date: 20160113
  Transmission Date: 20160526
  Serious: Yes (Death, Other)
  Sender: FDA-Public Use
  Company Number: US-CELGENE-USA-2016010466

PATIENT
  Sex: Female

DRUGS (2)
  1. REVLIMID [Suspect]
     Active Substance: LENALIDOMIDE
     Indication: PLASMACYTOMA
     Route: 048
  2. BORTEZOMIB [Suspect]
     Active Substance: BORTEZOMIB
     Indication: PLASMACYTOMA
     Route: 065

REACTIONS (1)
  - Plasmacytoma [Fatal]
